FAERS Safety Report 9744055 (Version 3)
Quarter: 2014Q1

REPORT INFORMATION
  Report Type: Spontaneous
  Country: JP (occurrence: JP)
  Receive Date: 20131210
  Receipt Date: 20140312
  Transmission Date: 20141002
  Serious: Yes (Hospitalization, Other)
  Sender: FDA-Public Use
  Company Number: JP-PFIZER INC-2013349966

PATIENT
  Age: 72 Year
  Sex: Female
  Weight: 63 kg

DRUGS (14)
  1. JZOLOFT [Suspect]
     Indication: DEPRESSION
     Dosage: 25 MG, 1X/DAY, AFTER DINNER
     Route: 048
  2. DIAZEPAM [Suspect]
     Indication: DEPRESSION
     Dosage: 2 MG, 1X/DAY, AFTER DINNER
     Route: 048
  3. DIAZEPAM [Suspect]
     Dosage: 5 MG, AS NEEDED
     Route: 048
  4. URITOS [Concomitant]
     Indication: HYPERTONIC BLADDER
     Dosage: 0.1 MG, 2X/DAY, AFTER BREAKFAST AND DINNER
     Route: 048
     Dates: end: 20131107
  5. URITOS [Concomitant]
     Indication: NEUROGENIC BLADDER
  6. EBRANTIL [Concomitant]
     Indication: HYPERTONIC BLADDER
     Dosage: 30 MG, 2X/DAY, AFTER BREAKFAST AND DINNER
     Route: 048
     Dates: end: 20131107
  7. EBRANTIL [Concomitant]
     Indication: NEUROGENIC BLADDER
  8. ZOLPIDEM [Concomitant]
     Indication: INSOMNIA
     Dosage: 10 MG, AS NEEDED
     Route: 048
     Dates: end: 20131107
  9. NICHISTATE [Concomitant]
     Indication: CEREBRAL INFARCTION
     Dosage: 100 MG, 2X/DAY, AFTER BREAKFAST AND DINNER
     Route: 048
     Dates: end: 20131107
  10. FAMOTIDINE D [Concomitant]
     Indication: GASTRIC ULCER
     Dosage: 20 MG, 2X/DAY, AFTER BREAKFAST AND DINNER
     Route: 048
     Dates: end: 20131107
  11. SEPAMIT-R [Concomitant]
     Indication: HYPERTENSION
     Dosage: 10 MG, 2X/DAY, AFTER BREAKFAST AND DINNER
     Route: 048
     Dates: end: 20131022
  12. SEPAMIT-R [Concomitant]
     Dosage: 20 MG, 2X/DAY, AFTER BREAKFAST AND DINNER
     Route: 048
     Dates: start: 20131023, end: 20131107
  13. FLUITRAN [Concomitant]
     Indication: HYPERTENSION
     Dosage: 1 MG, 1X/DAY, AFTER BREAKFAST
     Route: 048
     Dates: end: 20131107
  14. SENNAL [Concomitant]
     Indication: CONSTIPATION
     Dosage: 24 MG, AS NEEDED
     Route: 048
     Dates: end: 20131107

REACTIONS (1)
  - Lacunar infarction [Recovering/Resolving]
